FAERS Safety Report 7934772-6 (Version None)
Quarter: 2011Q4

REPORT INFORMATION
  Report Type: 
  Country: None (occurrence: None)
  Receive Date: 20111122
  Receipt Date: 20111108
  Transmission Date: 20120403
  Serious: Yes (Other)
  Sender: FDA-Public Use
  Company Number: DE-UCBSA-045414

PATIENT

DRUGS (2)
  1. CERTOLIZUMAB PEGOL [Suspect]
     Dosage: INDUCTION THERAPY. AT WEEKS 0,2 AND 4.
     Route: 058
  2. CERTOLIZUMAB PEGOL [Suspect]
     Indication: CROHN'S DISEASE
     Route: 058

REACTIONS (1)
  - PULMONARY TUBERCULOSIS [None]
